FAERS Safety Report 13895516 (Version 1)
Quarter: 2017Q3

REPORT INFORMATION
  Report Type: Spontaneous
  Country: US (occurrence: US)
  Receive Date: 20170819
  Receipt Date: 20170819
  Transmission Date: 20171127
  Serious: Yes (Other)
  Sender: FDA-Public Use
  Company Number: None

PATIENT
  Age: 66 Year
  Sex: Female
  Weight: 96.3 kg

DRUGS (7)
  1. OMEPRAZOLE. [Concomitant]
     Active Substance: OMEPRAZOLE
  2. NAPROXYN SODIUM [Concomitant]
  3. CHOLESTYRAMINE. [Concomitant]
     Active Substance: CHOLESTYRAMINE
  4. LEXISCAN [Suspect]
     Active Substance: REGADENOSON
     Indication: CARDIAC STRESS TEST
     Route: 042
     Dates: start: 20170808, end: 20170808
  5. DEPOESTRADIOL [Concomitant]
  6. LISINOPRIL. [Concomitant]
     Active Substance: LISINOPRIL
  7. ACETAMINOPHEN. [Concomitant]
     Active Substance: ACETAMINOPHEN

REACTIONS (10)
  - Chest discomfort [None]
  - Chills [None]
  - Treatment noncompliance [None]
  - Hypertension [None]
  - Discomfort [None]
  - Abdominal discomfort [None]
  - Neck pain [None]
  - Throat irritation [None]
  - Anxiety [None]
  - Tremor [None]

NARRATIVE: CASE EVENT DATE: 20170808
